FAERS Safety Report 5566409-8 (Version None)
Quarter: 2007Q4

REPORT INFORMATION
  Report Type: 
  Country: None (occurrence: None)
  Receive Date: 20071217
  Receipt Date: 20071217
  Transmission Date: 20080405
  Serious: Yes (Hospitalization)
  Sender: FDA-Public Use
  Company Number: None

PATIENT
  Sex: Female
  Weight: 114 kg

DRUGS (2)
  1. CISPLATIN [Suspect]
     Dosage: 120 MG
  2. ERBITUX [Suspect]
     Dosage: 1000 MG

REACTIONS (2)
  - NAUSEA [None]
  - VOMITING [None]
